FAERS Safety Report 12242848 (Version 1)
Quarter: 2016Q2

REPORT INFORMATION
  Report Type: Spontaneous
  Country: US (occurrence: US)
  Receive Date: 20160406
  Receipt Date: 20160406
  Transmission Date: 20160815
  Serious: Yes (Hospitalization)
  Sender: FDA-Public Use
  Company Number: US-BIOGEN-2016BI00214030

PATIENT
  Sex: Female

DRUGS (1)
  1. TECFIDERA [Suspect]
     Active Substance: DIMETHYL FUMARATE
     Indication: MULTIPLE SCLEROSIS
     Route: 048
     Dates: start: 20150320

REACTIONS (5)
  - Adverse drug reaction [Unknown]
  - Feeling abnormal [Recovered/Resolved]
  - Urinary tract infection [Unknown]
  - Dysstasia [Recovered/Resolved]
  - Fall [Recovered/Resolved]
